FAERS Safety Report 6984863 (Version 2)
Quarter: 2014Q2

REPORT INFORMATION
  Report Type: Spontaneous
  Country: US (occurrence: US)
  Receive Date: 20090501
  Receipt Date: 20140423
  Transmission Date: 20141212
  Serious: Yes (Death, Other)
  Sender: FDA-Public Use
  Company Number: US-ALEXION-A200900023

PATIENT
  Age: 71 Year
  Sex: Male

DRUGS (2)
  1. SOLIRIS [Suspect]
     Indication: PAROXYSMAL NOCTURNAL HAEMOGLOBINURIA
     Dosage: 600 MG, QW
     Route: 042
     Dates: start: 20070508, end: 20070529
  2. SOLIRIS [Suspect]
     Dosage: 900 MG, Q2W
     Route: 042
     Dates: start: 20070605, end: 20070828

REACTIONS (3)
  - Myelodysplastic syndrome [Fatal]
  - Bone marrow failure [Not Recovered/Not Resolved]
  - Transfusion [Not Recovered/Not Resolved]
